FAERS Safety Report 24872045 (Version 1)
Quarter: 2025Q1

REPORT INFORMATION
  Report Type: Spontaneous
  Country: FR (occurrence: FR)
  Receive Date: 20250122
  Receipt Date: 20250122
  Transmission Date: 20250408
  Serious: Yes (Life-Threatening, Hospitalization)
  Sender: ABBVIE
  Company Number: None

PATIENT
  Age: 2 Year
  Sex: Male
  Weight: 13 kg

DRUGS (3)
  1. VENETOCLAX [Suspect]
     Active Substance: VENETOCLAX
     Indication: Acute lymphocytic leukaemia
     Dosage: D5 ON 31DEC2024 PLANNED D1 TO D21
     Route: 048
     Dates: start: 20241231, end: 20241231
  2. CYTARABINE [Concomitant]
     Active Substance: CYTARABINE
     Indication: Acute lymphocytic leukaemia
     Dosage: 1590MG, 2/DAY
     Route: 042
     Dates: start: 20241227, end: 20241229
  3. AMSACRINE [Concomitant]
     Active Substance: AMSACRINE
     Indication: Acute lymphocytic leukaemia
     Route: 042
     Dates: start: 20241227, end: 20241229

REACTIONS (2)
  - Acute respiratory distress syndrome [Recovered/Resolved]
  - Incorrect route of product administration [Recovered/Resolved]

NARRATIVE: CASE EVENT DATE: 20241231
